FAERS Safety Report 7002003-X (Version None)
Quarter: 2010Q3

REPORT INFORMATION
  Report Type: 
  Country: None (occurrence: None)
  Receive Date: 20100920
  Receipt Date: 20100907
  Transmission Date: 20110219
  Serious: Yes (Other)
  Sender: FDA-Public Use
  Company Number: B0674041A

PATIENT
  Age: 46 Year
  Sex: Male

DRUGS (2)
  1. PROPAFENONE HCL [Suspect]
     Indication: ATRIAL FIBRILLATION
     Dosage: 425MG TWICE PER DAY
     Route: 065
  2. FUROSEMIDE [Concomitant]

REACTIONS (3)
  - ELECTROCARDIOGRAM QRS COMPLEX PROLONGED [None]
  - LEFT VENTRICULAR DYSFUNCTION [None]
  - SYNCOPE [None]
